FAERS Safety Report 6150395-6 (Version None)
Quarter: 2009Q2

REPORT INFORMATION
  Report Type: 
  Country: None (occurrence: None)
  Receive Date: 20090407
  Receipt Date: 20090402
  Transmission Date: 20091009
  Serious: Yes (Other)
  Sender: FDA-Public Use
  Company Number: GXKR2009DE04146

PATIENT
  Sex: Male

DRUGS (1)
  1. AMINEURIN RETARD (NGX)(AMITRIPTYLINE) FILM-COATED TABLET, 100MG [Suspect]
     Dosage: 100 MG,  ORAL
     Route: 048

REACTIONS (1)
  - FACIAL PALSY [None]
